FAERS Safety Report 7392173-6 (Version None)
Quarter: 2011Q2

REPORT INFORMATION
  Report Type: 
  Country: None (occurrence: None)
  Receive Date: 20110404
  Receipt Date: 20110325
  Transmission Date: 20111010
  Serious: Yes (Other)
  Sender: FDA-Public Use
  Company Number: B0693251A

PATIENT
  Sex: Male

DRUGS (1)
  1. ABACAVIR SULFATE AND LAMIVUDINE [Suspect]
     Indication: HIV INFECTION
     Route: 065

REACTIONS (4)
  - DRUG INEFFECTIVE [None]
  - TABLET PHYSICAL ISSUE [None]
  - PRODUCT QUALITY ISSUE [None]
  - KAPOSI'S SARCOMA [None]
